FAERS Safety Report 25877285 (Version 1)
Quarter: 2025Q4

REPORT INFORMATION
  Report Type: Spontaneous
  Country: EU (occurrence: EU)
  Receive Date: 20251003
  Receipt Date: 20251003
  Transmission Date: 20260117
  Serious: Yes (Other)
  Sender: AUROBINDO
  Company Number: EU-AEMPS-1753564

PATIENT
  Age: 61 Year
  Sex: Male

DRUGS (2)
  1. PIPERACILLIN SODIUM\TAZOBACTAM SODIUM [Suspect]
     Active Substance: PIPERACILLIN SODIUM\TAZOBACTAM SODIUM
     Indication: Escherichia bacteraemia
     Dosage: 1 DOSAGE FORM, 3 TIMES A DAY
     Route: 042
     Dates: start: 20250829, end: 20250901
  2. ERTAPENEM [Suspect]
     Active Substance: ERTAPENEM
     Indication: Escherichia bacteraemia
     Dosage: 1 GRAM, ONCE A DAY
     Route: 042
     Dates: start: 20250901, end: 20250902

REACTIONS (1)
  - Hepatitis [Recovering/Resolving]

NARRATIVE: CASE EVENT DATE: 20250902
